FAERS Safety Report 10867086 (Version 1)
Quarter: 2015Q1

REPORT INFORMATION
  Report Type: Spontaneous
  Country: US (occurrence: US)
  Receive Date: 20150225
  Receipt Date: 20150225
  Transmission Date: 20150721
  Serious: Yes (Other)
  Sender: FDA-Public Use
  Company Number: US-JNJFOC-20150210167

PATIENT
  Sex: Male
  Weight: 88.45 kg

DRUGS (1)
  1. LEVAQUIN [Suspect]
     Active Substance: LEVOFLOXACIN
     Indication: PRODUCT USED FOR UNKNOWN INDICATION
     Route: 065

REACTIONS (4)
  - Laryngitis [Not Recovered/Not Resolved]
  - Muscle spasms [Recovered/Resolved]
  - Peripheral nerve injury [Not Recovered/Not Resolved]
  - Drug hypersensitivity [Unknown]
